FAERS Safety Report 4435806-6 (Version None)
Quarter: 2004Q3

REPORT INFORMATION
  Report Type: 
  Country: None (occurrence: None)
  Receive Date: 20040826
  Receipt Date: 20040813
  Transmission Date: 20050211
  Serious: Yes (Death)
  Sender: FDA-Public Use
  Company Number: 1781-063-1

PATIENT
  Age: 72 Year
  Sex: Male
  Weight: 83.9154 kg

DRUGS (8)
  1. DEXFERRUM [Suspect]
     Indication: IRON DEFICIENCY ANAEMIA
     Dosage: 500MG EVERY 2 WEEKS
     Dates: start: 20040813
  2. DILANTIN [Concomitant]
  3. KLONOPIN [Concomitant]
  4. PAXIL [Concomitant]
  5. PERCOCET [Concomitant]
  6. HYDROCHLOROTHIAZIDE [Concomitant]
  7. DUONEB SOL'N [Concomitant]
  8. SPIRONOLACTONE [Concomitant]

REACTIONS (11)
  - ACUTE MYOCARDIAL INFARCTION [None]
  - ATRIAL FIBRILLATION [None]
  - BLOOD PRESSURE DECREASED [None]
  - COLD SWEAT [None]
  - COMA [None]
  - CONVULSION [None]
  - ELECTROCARDIOGRAM Q WAVES [None]
  - ELECTROMECHANICAL DISSOCIATION [None]
  - MEDICATION ERROR [None]
  - OXYGEN SATURATION DECREASED [None]
  - PALLOR [None]
